FAERS Safety Report 4709991-2 (Version None)
Quarter: 2005Q3

REPORT INFORMATION
  Report Type: 
  Country: None (occurrence: None)
  Receive Date: 20050708
  Receipt Date: 20050701
  Transmission Date: 20060218
  Serious: Yes (Other)
  Sender: FDA-Public Use
  Company Number: 200516153GDDC

PATIENT
  Age: 47 Year
  Sex: Female
  Weight: 60 kg

DRUGS (3)
  1. TAXOTERE [Suspect]
     Indication: BREAST CANCER
     Route: 042
     Dates: start: 20050520
  2. DOXORUBICIN HCL [Concomitant]
     Indication: BREAST CANCER
     Route: 042
     Dates: start: 20050318, end: 20050424
  3. CYCLOPHOSPHAMIDE [Concomitant]
     Indication: BREAST CANCER
     Route: 042
     Dates: start: 20050318, end: 20050424

REACTIONS (2)
  - CEREBRAL VENOUS THROMBOSIS [None]
  - CONVULSION [None]
